FAERS Safety Report 7039920-0 (Version None)
Quarter: 2010Q4

REPORT INFORMATION
  Report Type: 
  Country: None (occurrence: None)
  Receive Date: 20101012
  Receipt Date: 20101007
  Transmission Date: 20110411
  Serious: Yes (Death, Hospitalization, Other)
  Sender: FDA-Public Use
  Company Number: CA-PFIZER INC-2010072294

PATIENT
  Age: 70 Year
  Sex: Male
  Weight: 69.5 kg

DRUGS (12)
  1. *PREDNISONE [Suspect]
     Indication: PROSTATE CANCER
     Dosage: 5 MG, 2X/DAY
     Route: 048
     Dates: start: 20100319
  2. BLINDED *NO SUBJECT DRUG [Suspect]
     Indication: PROSTATE CANCER
     Dosage: UNK
     Route: 048
     Dates: start: 20100319, end: 20100602
  3. BLINDED *PLACEBO [Suspect]
     Indication: PROSTATE CANCER
     Dosage: UNK
     Route: 048
     Dates: start: 20100319, end: 20100602
  4. SUNITINIB MALATE [Suspect]
     Indication: PROSTATE CANCER
     Dosage: UNK
     Route: 048
     Dates: start: 20100319, end: 20100602
  5. CALCIUM [Concomitant]
     Indication: SUPPLEMENTATION THERAPY
     Dosage: UNK
     Dates: start: 20070501
  6. VITAMIN D [Concomitant]
     Indication: SUPPLEMENTATION THERAPY
     Dosage: UNK
     Dates: start: 20070501
  7. PANTOLOC ^SOLVAY^ [Concomitant]
     Indication: DYSPEPSIA
     Dosage: UNK
     Dates: start: 20100401
  8. STEMETIL ^AVENTIS PHARMA^ [Concomitant]
     Indication: NAUSEA
     Dosage: UNK
     Dates: start: 20100501, end: 20100602
  9. GRAVOL TAB [Concomitant]
     Indication: NAUSEA
     Dosage: UNK
     Dates: start: 20100602
  10. MAGIC MOUTHWASH [Concomitant]
     Indication: STOMATITIS
     Dosage: UNK
     Dates: start: 20100602
  11. LIDOCAINE HCL VISCOUS [Concomitant]
     Indication: STOMATITIS
     Dosage: UNK
     Dates: start: 20100604
  12. ANUSOL [Concomitant]
     Indication: DERMATITIS
     Dosage: UNK
     Dates: start: 20100604

REACTIONS (4)
  - CLOSTRIDIAL INFECTION [None]
  - FALL [None]
  - PNEUMONIA [None]
  - SEPSIS [None]
